FAERS Safety Report 7688429-X (Version None)
Quarter: 2011Q3

REPORT INFORMATION
  Report Type: 
  Country: None (occurrence: None)
  Receive Date: 20110817
  Receipt Date: 20110804
  Transmission Date: 20111222
  Serious: Yes (Death, Life-Threatening)
  Sender: FDA-Public Use
  Company Number: JP-ROCHE-794559

PATIENT
  Sex: Female
  Weight: 48 kg

DRUGS (17)
  1. KRESTIN [Concomitant]
     Route: 048
     Dates: start: 20090414, end: 20100812
  2. AVASTIN [Suspect]
     Route: 042
     Dates: start: 20080121, end: 20080401
  3. XELODA [Suspect]
     Route: 048
     Dates: start: 20091105, end: 20100101
  4. FLUOROURACIL [Concomitant]
     Route: 041
     Dates: start: 20080424, end: 20090301
  5. IRINOTECAN HCL [Concomitant]
     Route: 041
     Dates: start: 20090310, end: 20091001
  6. AVASTIN [Suspect]
     Route: 042
     Dates: start: 20090414, end: 20100812
  7. ERBITUX [Concomitant]
     Route: 041
     Dates: start: 20090310, end: 20091001
  8. AVASTIN [Suspect]
     Route: 042
     Dates: start: 20080515, end: 20090301
  9. XELODA [Suspect]
     Route: 048
     Dates: start: 20100107, end: 20100730
  10. FLUOROURACIL [Concomitant]
     Route: 041
     Dates: start: 20070625, end: 20080401
  11. FLUOROURACIL [Concomitant]
     Route: 041
     Dates: start: 20070625, end: 20080401
  12. FLUOROURACIL [Concomitant]
     Route: 041
     Dates: start: 20080424, end: 20090301
  13. LEUCOVORIN CALCIUM [Concomitant]
     Route: 041
     Dates: start: 20080424, end: 20090301
  14. IRINOTECAN HCL [Concomitant]
     Route: 041
     Dates: start: 20080424, end: 20090301
  15. AVASTIN [Suspect]
     Route: 042
     Dates: start: 20091105, end: 20100101
  16. OXALIPLATIN [Concomitant]
     Route: 041
     Dates: start: 20070625, end: 20080401
  17. LEUCOVORIN CALCIUM [Concomitant]
     Route: 041
     Dates: start: 20070625, end: 20080401

REACTIONS (2)
  - DISEASE PROGRESSION [None]
  - HAEMATURIA [None]
